FAERS Safety Report 12898530 (Version 1)
Quarter: 2016Q4

REPORT INFORMATION
  Report Type: Spontaneous
  Country: US (occurrence: US)
  Receive Date: 20161031
  Receipt Date: 20161031
  Transmission Date: 20170207
  Serious: No
  Sender: FDA-Public Use
  Company Number: US-TAIHO ONCOLOGY INC-EU-2016-02822

PATIENT
  Sex: Female

DRUGS (18)
  1. AZITHROMYCIN ANHYDROUS. [Concomitant]
     Active Substance: AZITHROMYCIN ANHYDROUS
     Dosage: NI
  2. VAGIFEM [Concomitant]
     Active Substance: ESTRADIOL
     Dosage: NI
  3. NYSTATIN. [Concomitant]
     Active Substance: NYSTATIN
     Dosage: NI
  4. LONSURF [Suspect]
     Active Substance: TIPIRACIL HYDROCHLORIDE\TRIFLURIDINE
     Indication: COLON CANCER
     Route: 048
     Dates: start: 20160825
  5. OXYCODONE [Concomitant]
     Active Substance: OXYCODONE
     Dosage: NI
  6. TRAMADOL. [Concomitant]
     Active Substance: TRAMADOL
     Dosage: NI
  7. MELOXICAM. [Concomitant]
     Active Substance: MELOXICAM
     Dosage: NI
  8. SANCUSO [Concomitant]
     Active Substance: GRANISETRON
     Dosage: NI
  9. FENTANYL. [Concomitant]
     Active Substance: FENTANYL
     Dosage: NI
  10. MODAFINIL. [Concomitant]
     Active Substance: MODAFINIL
     Dosage: NI
  11. OMEPRAZOLE. [Concomitant]
     Active Substance: OMEPRAZOLE
     Dosage: NI
  12. ONDANSETRON [Concomitant]
     Active Substance: ONDANSETRON
     Dosage: NI
  13. POT CL MICRO [Concomitant]
     Dosage: NI
  14. TYLENOL [Concomitant]
     Active Substance: ACETAMINOPHEN
     Dosage: NI
  15. LIDOCAINE/PRILOCAINE [Concomitant]
  16. BIOTIN [Concomitant]
     Active Substance: BIOTIN
     Dosage: NI
  17. HYOSCYAMINE. [Concomitant]
     Active Substance: HYOSCYAMINE
     Dosage: NI
  18. VALACICLOVIR [Concomitant]
     Active Substance: VALACYCLOVIR HYDROCHLORIDE
     Dosage: NI

REACTIONS (4)
  - Alopecia [Not Recovered/Not Resolved]
  - Abdominal distension [Not Recovered/Not Resolved]
  - Flatulence [Not Recovered/Not Resolved]
  - Decreased appetite [Not Recovered/Not Resolved]

NARRATIVE: CASE EVENT DATE: 2016
